FAERS Safety Report 14373685 (Version 2)
Quarter: 2018Q4

REPORT INFORMATION
  Report Type: Spontaneous
  Country: US (occurrence: US)
  Receive Date: 20180110
  Receipt Date: 20181004
  Transmission Date: 20190204
  Serious: Yes (Other)
  Sender: FDA-Public Use
  Company Number: US-AMGEN-USASP2018001919

PATIENT
  Age: 0 Day
  Sex: Male
  Weight: 2.98 kg

DRUGS (4)
  1. QVAR [Concomitant]
     Active Substance: BECLOMETHASONE DIPROPIONATE
     Indication: EXPOSURE DURING PREGNANCY
     Dosage: UNK UNK, 2 PUFF BID
     Route: 064
  2. ZYRTEC [Concomitant]
     Active Substance: CETIRIZINE HYDROCHLORIDE
     Indication: EXPOSURE DURING PREGNANCY
     Dosage: UNK UNK, QD
     Route: 064
     Dates: start: 20080101
  3. ENBREL [Suspect]
     Active Substance: ETANERCEPT
     Indication: EXPOSURE DURING PREGNANCY
     Dosage: 50 MG, QWK
     Route: 064
     Dates: start: 20110909, end: 20170101
  4. PROAIR HFA [Concomitant]
     Active Substance: ALBUTEROL SULFATE
     Indication: EXPOSURE DURING PREGNANCY
     Dosage: UNK UNK, 2 PUFF AS NECESSARY
     Route: 064
     Dates: start: 20110101

REACTIONS (1)
  - Premature baby [Recovered/Resolved]

NARRATIVE: CASE EVENT DATE: 20170820
